FAERS Safety Report 20047603 (Version 1)
Quarter: 2021Q4

REPORT INFORMATION
  Report Type: Spontaneous
  Country: FR (occurrence: FR)
  Receive Date: 20211109
  Receipt Date: 20211109
  Transmission Date: 20220303
  Serious: Yes (Disabling, Other)
  Sender: FDA-Public Use
  Company Number: FR-ABBVIE-21K-056-4153463-00

PATIENT
  Age: 45 Year
  Sex: Male

DRUGS (5)
  1. VALPROATE SODIUM [Suspect]
     Active Substance: VALPROATE SODIUM
     Indication: Epilepsy
     Route: 048
     Dates: start: 201806
  2. LACOSAMIDE [Suspect]
     Active Substance: LACOSAMIDE
     Indication: Epilepsy
     Route: 048
     Dates: start: 2016
  3. TOPIRAMATE [Suspect]
     Active Substance: TOPIRAMATE
     Indication: Epilepsy
     Route: 048
     Dates: start: 2016
  4. TOPIRAMATE [Suspect]
     Active Substance: TOPIRAMATE
     Route: 048
  5. ESLICARBAZEPINE ACETATE [Suspect]
     Active Substance: ESLICARBAZEPINE ACETATE
     Indication: Epilepsy
     Route: 048
     Dates: start: 201803, end: 201908

REACTIONS (1)
  - Toxic optic neuropathy [Not Recovered/Not Resolved]

NARRATIVE: CASE EVENT DATE: 20180801
